FAERS Safety Report 21173471 (Version 2)
Quarter: 2022Q3

REPORT INFORMATION
  Report Type: Report from Study
  Country: DE (occurrence: None)
  Receive Date: 20220804
  Receipt Date: 20220909
  Transmission Date: 20221027
  Serious: No
  Sender: FDA-Public Use
  Company Number: DE-Merck Healthcare KGaA-9337311

PATIENT
  Age: 31 Year
  Sex: Female
  Weight: 60 kg

DRUGS (2)
  1. REBIF [Suspect]
     Active Substance: INTERFERON BETA-1A
     Indication: Multiple sclerosis
     Route: 058
     Dates: start: 201906
  2. LEVOTHYROXINE [Suspect]
     Active Substance: LEVOTHYROXINE
     Indication: Product used for unknown indication
     Route: 048
     Dates: start: 20210805, end: 20220212

REACTIONS (4)
  - Iron deficiency [Recovered/Resolved]
  - Breast feeding [Not Recovered/Not Resolved]
  - Normal newborn [Recovered/Resolved]
  - Maternal exposure during pregnancy [Recovered/Resolved]

NARRATIVE: CASE EVENT DATE: 20210805
